FAERS Safety Report 9677161 (Version 1)
Quarter: 2013Q4

REPORT INFORMATION
  Report Type: Spontaneous
  Country: BR (occurrence: BR)
  Receive Date: 20131108
  Receipt Date: 20131108
  Transmission Date: 20140711
  Serious: Yes (Other)
  Sender: FDA-Public Use
  Company Number: BR-BRISTOL-MYERS SQUIBB COMPANY-19734185

PATIENT
  Age: 65 Year
  Sex: Female
  Weight: 116 kg

DRUGS (5)
  1. BYETTA [Suspect]
     Indication: DIABETES MELLITUS
     Route: 058
  2. BYETTA [Suspect]
     Indication: WEIGHT DECREASED
     Route: 058
  3. METFORMIN [Concomitant]
     Indication: DIABETES MELLITUS
  4. GALVUS [Concomitant]
     Indication: DIABETES MELLITUS
  5. DIOVAN [Concomitant]
     Indication: HYPERTENSION

REACTIONS (3)
  - Breast cancer [Unknown]
  - Injection site mass [Unknown]
  - Bone pain [Unknown]
